FAERS Safety Report 9940853 (Version 2)
Quarter: 2014Q1

REPORT INFORMATION
  Report Type: Spontaneous
  Country: US (occurrence: US)
  Receive Date: 20140303
  Receipt Date: 20140303
  Transmission Date: 20141002
  Serious: Yes (Disabling)
  Sender: FDA-Public Use
  Company Number: US-GE HEALTHCARE MEDICAL DIAGNOSTICS-OSCN-PR-0805S-0299

PATIENT
  Age: 73 Year
  Sex: Male

DRUGS (5)
  1. OMNISCAN [Suspect]
     Indication: PAIN IN EXTREMITY
     Route: 042
     Dates: start: 20060602, end: 20060602
  2. OMNISCAN [Suspect]
     Indication: IMPAIRED HEALING
     Route: 042
     Dates: start: 20060606, end: 20060606
  3. OMNISCAN [Suspect]
     Route: 042
     Dates: start: 20060725, end: 20060725
  4. OMNISCAN [Suspect]
     Route: 042
     Dates: start: 20060726, end: 20060726
  5. OMNISCAN [Suspect]
     Route: 042
     Dates: start: 20060806, end: 20060806

REACTIONS (1)
  - Nephrogenic systemic fibrosis [Not Recovered/Not Resolved]
